FAERS Safety Report 11664841 (Version 3)
Quarter: 2015Q4

REPORT INFORMATION
  Report Type: Report from Study
  Country: CR (occurrence: CR)
  Receive Date: 20151027
  Receipt Date: 20151105
  Transmission Date: 20160304
  Serious: Yes (Other)
  Sender: FDA-Public Use
  Company Number: PHHY2015CR136884

PATIENT
  Age: 43 Year
  Sex: Female

DRUGS (4)
  1. LEVOTIROXINA [Concomitant]
     Active Substance: LEVOTHYROXINE SODIUM
     Indication: HYPOTHYROIDISM
     Dosage: 2 UG, DAILY FROM MONDAY TO FRIDAY
     Route: 065
  2. VITAMIN D [Concomitant]
     Active Substance: CHOLECALCIFEROL
     Indication: PRODUCT USED FOR UNKNOWN INDICATION
     Dosage: 1 DF, QD
     Route: 048
  3. SANDOSTATIN LAR DEPOT [Suspect]
     Active Substance: OCTREOTIDE ACETATE
     Indication: ACROMEGALY
     Dosage: UNK UNK, QMO
     Route: 065
     Dates: start: 201209
  4. SANDOSTATIN LAR DEPOT [Suspect]
     Active Substance: OCTREOTIDE ACETATE
     Dosage: 30 MG, QMO
     Route: 065

REACTIONS (7)
  - Uterine haemorrhage [Unknown]
  - Uterine leiomyoma [Unknown]
  - Nausea [Recovered/Resolved]
  - Hormone level abnormal [Recovering/Resolving]
  - Vomiting [Recovered/Resolved]
  - Headache [Not Recovered/Not Resolved]
  - Diarrhoea [Recovered/Resolved]
